FAERS Safety Report 25005254 (Version 1)
Quarter: 2025Q1

REPORT INFORMATION
  Report Type: Spontaneous
  Country: US (occurrence: None)
  Receive Date: 20250222
  Receipt Date: 20250222
  Transmission Date: 20250408
  Serious: Yes (Disabling)
  Sender: FDA-CTU
  Company Number: None

PATIENT
  Age: 46 Year
  Sex: Female
  Weight: 57.15 kg

DRUGS (18)
  1. GAMUNEX-C [Suspect]
     Active Substance: HUMAN IMMUNOGLOBULIN G
     Indication: Stiff person syndrome
     Dates: start: 20250128, end: 20250201
  2. AMITRIPTYLINE [Suspect]
     Active Substance: AMITRIPTYLINE
  3. METHOTREXATE [Suspect]
     Active Substance: METHOTREXATE
  4. MOBIC [Suspect]
     Active Substance: MELOXICAM
  5. TIROSINT [Concomitant]
     Active Substance: LEVOTHYROXINE SODIUM
  6. diltazem [Concomitant]
  7. BACLOFEN [Concomitant]
     Active Substance: BACLOFEN
  8. CLONAZEPAM [Concomitant]
     Active Substance: CLONAZEPAM
  9. HYDROXYZINE [Concomitant]
     Active Substance: HYDROXYZINE HYDROCHLORIDE
  10. IVIG (immunoglobulin) [Concomitant]
  11. CREON [Concomitant]
     Active Substance: PANCRELIPASE AMYLASE\PANCRELIPASE LIPASE\PANCRELIPASE PROTEASE
  12. VALIUM [Concomitant]
     Active Substance: DIAZEPAM
  13. CANNABIDIOL\HERBALS [Concomitant]
     Active Substance: CANNABIDIOL\HERBALS
  14. MAGNESIUM (GLYC) [Concomitant]
  15. D3/K2/MTC OIL [Concomitant]
  16. k1 [Concomitant]
  17. ALIGN [Concomitant]
     Active Substance: BIFIDOBACTERIUM LONGUM SUBSP. INFANTIS
  18. lions mane [Concomitant]

REACTIONS (12)
  - Product availability issue [None]
  - Pruritus [None]
  - Stiff person syndrome [None]
  - Mental disorder [None]
  - Pernicious anaemia [None]
  - Condition aggravated [None]
  - Feeling of despair [None]
  - Autoimmune hepatitis [None]
  - Suicidal ideation [None]
  - Nonspecific reaction [None]
  - Pain [None]
  - Procedural complication [None]

NARRATIVE: CASE EVENT DATE: 20250201
